FAERS Safety Report 23814319 (Version 1)
Quarter: 2024Q2

REPORT INFORMATION
  Report Type: Spontaneous
  Country: SY (occurrence: SY)
  Receive Date: 20240503
  Receipt Date: 20240503
  Transmission Date: 20240716
  Serious: Yes (Other)
  Sender: FDA-Public Use
  Company Number: SY-SUN PHARMACEUTICAL INDUSTRIES LTD-2024RR-444855

PATIENT
  Age: 60 Year
  Sex: Female

DRUGS (3)
  1. ALLOPURINOL [Suspect]
     Active Substance: ALLOPURINOL
     Indication: Leishmaniasis
     Dosage: 300 MILLIGRAM - DAY 1
     Route: 065
  2. ALLOPURINOL [Suspect]
     Active Substance: ALLOPURINOL
     Dosage: 600 MILLIGRAM - DAY 2
     Route: 065
  3. ALLOPURINOL [Suspect]
     Active Substance: ALLOPURINOL
     Dosage: 900 MILLIGRAM - DAY 3
     Route: 065

REACTIONS (1)
  - Disease progression [Recovered/Resolved]
